FAERS Safety Report 23979489 (Version 1)
Quarter: 2024Q2

REPORT INFORMATION
  Report Type: Spontaneous
  Country: US (occurrence: US)
  Receive Date: 20240616
  Receipt Date: 20240616
  Transmission Date: 20240716
  Serious: No
  Sender: FDA-Public Use
  Company Number: US-SA-SAC20240610001326

PATIENT
  Age: 73 Year
  Sex: Female
  Weight: 57.6 kg

DRUGS (1)
  1. REZUROCK [Suspect]
     Active Substance: BELUMOSUDIL
     Indication: Graft versus host disease
     Dosage: 200 MG, QD
     Route: 048

REACTIONS (3)
  - Secretion discharge [Not Recovered/Not Resolved]
  - Choking sensation [Not Recovered/Not Resolved]
  - Dyspnoea [Not Recovered/Not Resolved]
